FAERS Safety Report 26111034 (Version 2)
Quarter: 2025Q4

REPORT INFORMATION
  Report Type: Report from Study
  Country: CO (occurrence: CO)
  Receive Date: 20251202
  Receipt Date: 20251218
  Transmission Date: 20260117
  Serious: Yes (Hospitalization)
  Sender: TAKEDA
  Company Number: CO-TAKEDA-2023TUS063243

PATIENT
  Age: 63 Year
  Sex: Male
  Weight: 63 kg

DRUGS (2)
  1. VEDOLIZUMAB [Suspect]
     Active Substance: VEDOLIZUMAB
     Indication: Crohn^s disease
     Dosage: 300 MILLIGRAM
  2. VEDOLIZUMAB [Suspect]
     Active Substance: VEDOLIZUMAB
     Dosage: 300 MILLIGRAM, Q4WEEKS
     Dates: start: 20241101

REACTIONS (10)
  - Malaise [Unknown]
  - Abdominal distension [Unknown]
  - Diarrhoea [Unknown]
  - Abdominal pain [Unknown]
  - Pyrexia [Unknown]
  - Nausea [Unknown]
  - Weight increased [Unknown]
  - Treatment noncompliance [Unknown]
  - Weight decreased [Unknown]
  - Drug ineffective [Unknown]

NARRATIVE: CASE EVENT DATE: 20241101
